FAERS Safety Report 8990473 (Version 1)
Quarter: 2012Q4

REPORT INFORMATION
  Report Type: 
  Country: US (occurrence: US)
  Receive Date: 20121228
  Receipt Date: 20121228
  Transmission Date: 20130627
  Serious: Yes (Hospitalization)
  Sender: FDA-Public Use
  Company Number: US-VERTEX PHARMACEUTICALS INC.-2012-026717

PATIENT
  Sex: Male
  Weight: 66.7 kg

DRUGS (3)
  1. VX-950 (TELAPREVIR) [Suspect]
     Indication: HEPATITIS C
     Dosage: 750 mg, tid
     Route: 048
     Dates: start: 20121023
  2. RIBASPHERE [Suspect]
     Indication: HEPATITIS C
     Dosage: 400 mg am, 600 mg pm
     Route: 048
     Dates: start: 20121023
  3. PEGASYS [Suspect]
     Indication: HEPATITIS C
     Dosage: 180 ?g, UNK
     Route: 058
     Dates: start: 20121023

REACTIONS (3)
  - Inflammation [Unknown]
  - Surgery [Unknown]
  - Adverse drug reaction [Unknown]
